FAERS Safety Report 19777766 (Version 11)
Quarter: 2022Q1

REPORT INFORMATION
  Report Type: Report from Study
  Country: MX (occurrence: MX)
  Receive Date: 20210902
  Receipt Date: 20220310
  Transmission Date: 20220423
  Serious: Yes (Life-Threatening, Disabling, Other)
  Sender: FDA-Public Use
  Company Number: NVSC2021MX197973

PATIENT
  Age: 23 Year
  Sex: Female

DRUGS (1)
  1. GILENYA [Suspect]
     Active Substance: FINGOLIMOD HYDROCHLORIDE
     Indication: Multiple sclerosis
     Dosage: 0.5 MG, QD (EVERY 48 HOURS/EVERY OTHER DAY)
     Route: 048
     Dates: start: 201901

REACTIONS (41)
  - Suicidal behaviour [Unknown]
  - Multiple sclerosis [Recovered/Resolved]
  - Influenza [Not Recovered/Not Resolved]
  - Cough [Not Recovered/Not Resolved]
  - Musculoskeletal stiffness [Unknown]
  - Multiple sclerosis relapse [Recovering/Resolving]
  - Speech disorder [Recovering/Resolving]
  - Hypoaesthesia [Recovering/Resolving]
  - Gait inability [Unknown]
  - Salpingitis [Unknown]
  - Endometriosis [Unknown]
  - Depression [Not Recovered/Not Resolved]
  - Leukopenia [Not Recovered/Not Resolved]
  - Anaemia [Recovering/Resolving]
  - Weight abnormal [Unknown]
  - Memory impairment [Unknown]
  - Blood creatine decreased [Not Recovered/Not Resolved]
  - Malaise [Unknown]
  - Somnolence [Unknown]
  - Insomnia [Not Recovered/Not Resolved]
  - Hormone level abnormal [Unknown]
  - Pain in extremity [Not Recovered/Not Resolved]
  - Heavy menstrual bleeding [Unknown]
  - Platelet count decreased [Not Recovered/Not Resolved]
  - Stress [Unknown]
  - Headache [Not Recovered/Not Resolved]
  - Lymphocyte count decreased [Not Recovered/Not Resolved]
  - Alopecia [Not Recovered/Not Resolved]
  - Injury [Unknown]
  - Ligament sprain [Unknown]
  - Joint injury [Unknown]
  - Fall [Not Recovered/Not Resolved]
  - Red blood cell count decreased [Not Recovered/Not Resolved]
  - Blood cholesterol increased [Not Recovered/Not Resolved]
  - Fatigue [Unknown]
  - Dizziness [Not Recovered/Not Resolved]
  - Asthenia [Not Recovered/Not Resolved]
  - Food craving [Unknown]
  - Menstruation irregular [Unknown]
  - Eructation [Unknown]
  - Inappropriate schedule of product administration [Unknown]

NARRATIVE: CASE EVENT DATE: 20210223
